FAERS Safety Report 18839811 (Version 2)
Quarter: 2021Q1

REPORT INFORMATION
  Report Type: Report from Study
  Country: CA (occurrence: CA)
  Receive Date: 20210203
  Receipt Date: 20210223
  Transmission Date: 20210419
  Serious: Yes (Other)
  Sender: FDA-Public Use
  Company Number: CA-BRISTOL-MYERS SQUIBB COMPANY-BMS-2020-113254

PATIENT
  Age: 46 Year
  Sex: Female

DRUGS (1)
  1. ABATACEPT [Suspect]
     Active Substance: ABATACEPT
     Indication: PRODUCT USED FOR UNKNOWN INDICATION
     Dosage: 500 MILLIGRAM, Q3WK
     Route: 058

REACTIONS (4)
  - Nausea [Unknown]
  - Systemic lupus erythematosus [Unknown]
  - Migraine [Unknown]
  - Off label use [Unknown]

NARRATIVE: CASE EVENT DATE: 20201231
